FAERS Safety Report 9520181 (Version 1)
Quarter: 2013Q3

REPORT INFORMATION
  Report Type: Spontaneous
  Country: US (occurrence: US)
  Receive Date: 20130912
  Receipt Date: 20130912
  Transmission Date: 20140515
  Serious: No
  Sender: FDA-Public Use
  Company Number: US-MUTUAL PHARMACEUTICAL COMPANY, INC.-BCTM20120033

PATIENT
  Age: 49 Year
  Sex: Female

DRUGS (2)
  1. BACTRIM TABLETS [Suspect]
     Indication: ECZEMA
     Route: 048
     Dates: start: 20120628, end: 20120629
  2. ALLEGRA [Concomitant]
     Indication: SEASONAL ALLERGY

REACTIONS (6)
  - Dermatitis exfoliative [Recovering/Resolving]
  - Skin discolouration [Not Recovered/Not Resolved]
  - Madarosis [Not Recovered/Not Resolved]
  - Drug hypersensitivity [Recovering/Resolving]
  - Rash [Recovered/Resolved]
  - Pruritus [Recovered/Resolved]
